FAERS Safety Report 21732816 (Version 1)
Quarter: 2022Q4

REPORT INFORMATION
  Report Type: Spontaneous
  Country: US (occurrence: US)
  Receive Date: 20221215
  Receipt Date: 20221215
  Transmission Date: 20230113
  Serious: Yes (Hospitalization)
  Sender: FDA-Public Use
  Company Number: US-TEVA-2022-US-2834663

PATIENT
  Age: 60 Year
  Sex: Male

DRUGS (2)
  1. MOXIFLOXACIN [Suspect]
     Active Substance: MOXIFLOXACIN
     Indication: Prophylaxis
     Dosage: UNDILUTED PRESERVATIVE FREE INTRACAMERAL MOXIFLOXACIN , 0.2 ML , MOXIFLOXACIN: 0.50 %;
     Route: 050
  2. MOXIFLOXACIN [Suspect]
     Active Substance: MOXIFLOXACIN
     Indication: Endophthalmitis
     Dosage: UNDILUTED PRESERVATIVE FREE INTRASTROMAL MOXIFLOXACIN , 0.1 ML , MOXIFLOXACIN: 0.50 %;
     Route: 050

REACTIONS (4)
  - Corneal decompensation [Unknown]
  - Toxic anterior segment syndrome [Unknown]
  - Off label use [Unknown]
  - Off label use [Unknown]
